FAERS Safety Report 6429673-9 (Version None)
Quarter: 2009Q4

REPORT INFORMATION
  Report Type: 
  Country: None (occurrence: None)
  Receive Date: 20091106
  Receipt Date: 20091104
  Transmission Date: 20100525
  Serious: Yes (Death)
  Sender: FDA-Public Use
  Company Number: US-BIOGENIDEC-2009BI035185

PATIENT
  Sex: Male

DRUGS (2)
  1. TYSABRI [Suspect]
     Indication: MULTIPLE SCLEROSIS
     Route: 042
     Dates: start: 20071115, end: 20080214
  2. TYSABRI [Suspect]
     Route: 042
     Dates: start: 20080912, end: 20081212

REACTIONS (3)
  - BACK PAIN [None]
  - MULTIPLE SCLEROSIS [None]
  - PAIN [None]
